FAERS Safety Report 11941627 (Version 1)
Quarter: 2016Q1

REPORT INFORMATION
  Report Type: Spontaneous
  Country: IR (occurrence: IR)
  Receive Date: 20160123
  Receipt Date: 20160123
  Transmission Date: 20160526
  Serious: Yes (Hospitalization, Other)
  Sender: FDA-Public Use
  Company Number: IR-ACCORD-037196

PATIENT
  Age: 66 Year
  Sex: Male

DRUGS (1)
  1. MITOMYCIN. [Suspect]
     Active Substance: MITOMYCIN
     Indication: PRODUCT USED FOR UNKNOWN INDICATION

REACTIONS (2)
  - Maculopathy [Recovering/Resolving]
  - Conjunctival bleb [Recovering/Resolving]
